FAERS Safety Report 17037653 (Version 2)
Quarter: 2019Q4

REPORT INFORMATION
  Report Type: Report from Study
  Country: BE (occurrence: BE)
  Receive Date: 20191115
  Receipt Date: 20191206
  Transmission Date: 20200122
  Serious: Yes (Other)
  Sender: FDA-Public Use
  Company Number: PHHY2016BE016329

PATIENT
  Age: 47 Year
  Sex: Female

DRUGS (1)
  1. GILENYA [Suspect]
     Active Substance: FINGOLIMOD HYDROCHLORIDE
     Indication: MULTIPLE SCLEROSIS
     Dosage: 0.5 MG, QD
     Route: 048
     Dates: start: 20140930, end: 20160111

REACTIONS (14)
  - Gamma-glutamyltransferase increased [Unknown]
  - Blood bilirubin decreased [Unknown]
  - Urinary tract infection [Unknown]
  - Vulvovaginal candidiasis [Unknown]
  - Feeling cold [Unknown]
  - White blood cell count decreased [Unknown]
  - Fall [Unknown]
  - Nocturia [Not Recovered/Not Resolved]
  - Paraesthesia [Unknown]
  - Fractured sacrum [Recovered/Resolved]
  - Traumatic fracture [Recovered/Resolved]
  - Fatigue [Recovered/Resolved]
  - Visual impairment [Unknown]
  - Infection susceptibility increased [Not Recovered/Not Resolved]

NARRATIVE: CASE EVENT DATE: 201410
